FAERS Safety Report 6045628-0 (Version None)
Quarter: 2009Q1

REPORT INFORMATION
  Report Type: 
  Country: None (occurrence: None)
  Receive Date: 20090121
  Receipt Date: 20090116
  Transmission Date: 20090719
  Serious: Yes (Hospitalization)
  Sender: FDA-Public Use
  Company Number: DE-ABBOTT-08P-062-0490036-00

PATIENT
  Sex: Male
  Weight: 90 kg

DRUGS (2)
  1. HUMIRA [Suspect]
     Indication: PSORIATIC ARTHROPATHY
     Route: 058
     Dates: start: 20080507
  2. GLUCORTICOIDS [Concomitant]
     Indication: PSORIASIS
     Dates: start: 20081025

REACTIONS (2)
  - INGUINAL HERNIA REPAIR [None]
  - INGUINAL HERNIA, OBSTRUCTIVE [None]
